FAERS Safety Report 10395917 (Version 1)
Quarter: 2014Q3

REPORT INFORMATION
  Report Type: Spontaneous
  Country: DK (occurrence: CH)
  Receive Date: 20140820
  Receipt Date: 20140820
  Transmission Date: 20150326
  Serious: Yes (Other)
  Sender: FDA-Public Use
  Company Number: CH-FRI-1000070017

PATIENT
  Age: 0 Year
  Sex: Female
  Weight: 4.33 kg

DRUGS (5)
  1. ABILIFY [Suspect]
     Active Substance: ARIPIPRAZOLE
     Route: 064
  2. TEMESTA [Suspect]
     Active Substance: LORAZEPAM
     Dosage: 3 MG
     Route: 064
  3. TOPAMAX [Suspect]
     Active Substance: TOPIRAMATE
     Dosage: 100 MG
     Route: 064
  4. SEROQUEL [Suspect]
     Active Substance: QUETIAPINE FUMARATE
     Dosage: 200 MG
     Route: 064
  5. ESCITALOPRAM [Suspect]
     Active Substance: ESCITALOPRAM OXALATE
     Dosage: 20 MG
     Route: 064

REACTIONS (3)
  - Foetal macrosomia [Unknown]
  - Foetal exposure during pregnancy [Recovered/Resolved]
  - Hypoglycaemia neonatal [Recovered/Resolved]

NARRATIVE: CASE EVENT DATE: 2013
